FAERS Safety Report 9551402 (Version 1)
Quarter: 2013Q2

REPORT INFORMATION
  Report Type: Spontaneous
  Country: US (occurrence: None)
  Receive Date: 20130627
  Receipt Date: 20130627
  Transmission Date: 20140414
  Serious: No
  Sender: FDA-Public Use
  Company Number: 1000045193

PATIENT
  Age: 94 Year
  Sex: Female

DRUGS (3)
  1. LINZESS (LINACLOTIDE) (CAPSULES) [Suspect]
     Indication: CONSTIPATION
     Dosage: 1 IN 1 D
     Route: 048
     Dates: start: 201304, end: 201304
  2. CIPROFLOXACIN [Concomitant]
  3. PROMETHAZINE [Concomitant]

REACTIONS (4)
  - Diarrhoea [None]
  - Eructation [None]
  - Abdominal distension [None]
  - Abdominal pain upper [None]
